FAERS Safety Report 23723609 (Version 3)
Quarter: 2024Q2

REPORT INFORMATION
  Report Type: Report from Study
  Country: US (occurrence: US)
  Receive Date: 20240409
  Receipt Date: 20240412
  Transmission Date: 20240715
  Serious: Yes (Hospitalization)
  Sender: FDA-Public Use
  Company Number: US-PFIZER INC-202400082180

PATIENT
  Age: 89 Year
  Sex: Male

DRUGS (1)
  1. LORBRENA [Suspect]
     Active Substance: LORLATINIB
     Indication: Lung neoplasm malignant
     Dosage: 25MG, 3 TABLETS ONCE DAILY
     Dates: start: 2024

REACTIONS (3)
  - Diarrhoea [Not Recovered/Not Resolved]
  - Dizziness [Unknown]
  - Dehydration [Unknown]
